FAERS Safety Report 20586895 (Version 3)
Quarter: 2022Q1

REPORT INFORMATION
  Report Type: Spontaneous
  Country: ES (occurrence: ES)
  Receive Date: 20220314
  Receipt Date: 20220331
  Transmission Date: 20220423
  Serious: Yes (Other)
  Sender: FDA-Public Use
  Company Number: ES-MLMSERVICE-20220224-3389366-1

PATIENT
  Age: 69 Year
  Sex: Female

DRUGS (1)
  1. PIPERACETAZINE\TAZOBACTAM [Suspect]
     Active Substance: PIPERACETAZINE\TAZOBACTAM
     Indication: Antibiotic prophylaxis
     Dosage: 1 DOSAGE FORM, 3 TIMES A DAY
     Route: 042

REACTIONS (1)
  - Linear IgA disease [Recovered/Resolved]
